FAERS Safety Report 14695541 (Version 2)
Quarter: 2018Q2

REPORT INFORMATION
  Report Type: Spontaneous
  Country: PR (occurrence: US)
  Receive Date: 20180329
  Receipt Date: 20180409
  Transmission Date: 20180711
  Serious: Yes (Hospitalization)
  Sender: FDA-Public Use
  Company Number: PR-JNJFOC-20180339754

PATIENT
  Age: 57 Year
  Sex: Male

DRUGS (1)
  1. XARELTO [Suspect]
     Active Substance: RIVAROXABAN
     Indication: DEEP VEIN THROMBOSIS
     Route: 048
     Dates: start: 20150330, end: 20160725

REACTIONS (3)
  - Treatment noncompliance [Unknown]
  - Rash macular [Unknown]
  - Haemoptysis [Unknown]

NARRATIVE: CASE EVENT DATE: 20150415
